FAERS Safety Report 4266057-6 (Version None)
Quarter: 2004Q1

REPORT INFORMATION
  Report Type: 
  Country: None (occurrence: None)
  Receive Date: 20040106
  Receipt Date: 20031219
  Transmission Date: 20041129
  Serious: Yes (Death)
  Sender: FDA-Public Use
  Company Number: 200314512FR

PATIENT
  Age: 73 Year
  Sex: Female

DRUGS (10)
  1. FUROSEMIDE [Suspect]
     Dosage: 60 MG TID
     Dates: start: 20030804, end: 20030811
  2. CEFTAZIDIME PENTAHYDRATE (FORTUM) SOLUTION FOR INEJCTION [Suspect]
     Indication: SEPSIS
     Dosage: 1 G/DAY IVF
     Route: 042
     Dates: start: 20030731, end: 20030808
  3. TERLIPRESSIN ACETATE (GLYPRESSINE) SOLUTION FOR INJECTION [Suspect]
     Dosage: 2.5 MG/DAY IV
     Route: 042
     Dates: start: 20030804, end: 20030811
  4. LEVOTHYROXINE SODIUM [Suspect]
     Indication: HYPOTHYROIDISM
     Dosage: 75 UG QD PO
     Route: 048
     Dates: end: 20030730
  5. POTASSIUM CHLORIDE [Suspect]
     Indication: HYPOKALAEMIA
     Dosage: 6 U/DAY PO
     Route: 048
     Dates: end: 20030730
  6. PROPRANOLOL [Concomitant]
  7. CHLOROBUTANOL, HEXETIDINE, CHOLINE SALICYLATE (GIVALEX) [Concomitant]
  8. DICLOFENAC SODIUM (FLECTOR) [Concomitant]
  9. ALDACTONE [Concomitant]
  10. THIAMINE HYDROCHLORIDE, NIAOULI OIL, QUININE BENZOATE (HEXAQUINE) [Concomitant]

REACTIONS (10)
  - ACUTE GENERALISED EXANTHEMATOUS PUSTULOSIS [None]
  - ACUTE PULMONARY OEDEMA [None]
  - ANURIA [None]
  - BLOOD CREATININE INCREASED [None]
  - DERMATITIS EXFOLIATIVE [None]
  - GENERAL PHYSICAL HEALTH DETERIORATION [None]
  - HAEMOGLOBIN DECREASED [None]
  - OLIGURIA [None]
  - PLATELET COUNT DECREASED [None]
  - WEIGHT INCREASED [None]
